FAERS Safety Report 8955623 (Version 1)
Quarter: 2012Q4

REPORT INFORMATION
  Report Type: Report from Study
  Country: US (occurrence: US)
  Receive Date: 20121210
  Receipt Date: 20121210
  Transmission Date: 20130627
  Serious: Yes (Hospitalization)
  Sender: FDA-Public Use
  Company Number: US-BRISTOL-MYERS SQUIBB COMPANY-17110180

PATIENT
  Age: 75 Year
  Sex: Female

DRUGS (7)
  1. BLINDED: SAXAGLIPTIN [Suspect]
     Indication: TYPE 2 DIABETES MELLITUS
     Dates: start: 20111110, end: 20120917
  2. METFORMIN HCL [Suspect]
     Indication: TYPE 2 DIABETES MELLITUS
     Dosage: Prior to randomization
  3. BLINDED: PLACEBO [Suspect]
     Indication: TYPE 2 DIABETES MELLITUS
     Dates: start: 20111110, end: 20120917
  4. COUMADIN [Suspect]
     Indication: ATRIAL FIBRILLATION
  5. ASPIRIN [Suspect]
  6. DOBUTAMINE [Concomitant]
     Dates: start: 20121005
  7. AMIODARONE [Concomitant]
     Dosage: 15Oct12-26Oct12 250mg
27Oct2012-ong 200mg
     Dates: start: 20121005

REACTIONS (4)
  - Gastrointestinal haemorrhage [Recovered/Resolved]
  - Anaemia [Recovered/Resolved]
  - Sepsis [Recovered/Resolved]
  - Hypotension [Recovered/Resolved]
